FAERS Safety Report 17834820 (Version 1)
Quarter: 2020Q2

REPORT INFORMATION
  Report Type: Report from Study
  Country: None (occurrence: DE)
  Receive Date: 20200528
  Receipt Date: 20200528
  Transmission Date: 20200714
  Serious: Yes (Hospitalization)
  Sender: FDA-Public Use
  Company Number: DE-ABBVIE-20K-062-3418879-00

PATIENT
  Age: 45 Year
  Sex: Female
  Weight: 57 kg

DRUGS (2)
  1. HUMIRA [Suspect]
     Active Substance: ADALIMUMAB
     Indication: CROHN^S DISEASE
     Route: 058
     Dates: end: 202002
  2. HUMIRA [Suspect]
     Active Substance: ADALIMUMAB
     Indication: CROHN^S DISEASE
     Route: 058
     Dates: start: 20200511

REACTIONS (3)
  - Back pain [Recovered/Resolved]
  - Abdominal adhesions [Unknown]
  - Weight decreased [Recovering/Resolving]

NARRATIVE: CASE EVENT DATE: 201908
